FAERS Safety Report 8494525-X (Version None)
Quarter: 2012Q3

REPORT INFORMATION
  Report Type: 
  Country: None (occurrence: None)
  Receive Date: 20120709
  Receipt Date: 20120705
  Transmission Date: 20120928
  Serious: Yes (Hospitalization)
  Sender: FDA-Public Use
  Company Number: CN-AMGEN-CHNCT2012026045

PATIENT
  Age: 57 Year
  Sex: Male
  Weight: 69 kg

DRUGS (29)
  1. MULTI-VITAMINS [Concomitant]
     Indication: GLOSSITIS
  2. ASCORBIC ACID [Concomitant]
     Indication: PROPHYLAXIS
     Dosage: UNK
     Route: 042
     Dates: start: 20120228, end: 20120228
  3. MEGESTROL ACETATE [Concomitant]
     Indication: INCREASED APPETITE
     Dosage: UNK
     Route: 048
     Dates: start: 20120328, end: 20120329
  4. ACETAMINOPHEN [Concomitant]
     Indication: ANALGESIC THERAPY
     Dosage: UNK
     Route: 048
     Dates: start: 20120220, end: 20120610
  5. ERYTHROPOIETIN HUMAN [Concomitant]
     Dosage: UNK
     Route: 050
     Dates: start: 20120328, end: 20120329
  6. POTASSIUM CHLORIDE [Concomitant]
     Indication: HYPOKALAEMIA
     Dosage: UNK UNK, UNK
     Route: 042
     Dates: start: 20120217, end: 20120418
  7. MOXIFLOXACIN HYDROCHLORIDE [Concomitant]
     Indication: ANTIINFLAMMATORY THERAPY
     Dosage: UNK
     Route: 042
     Dates: start: 20120216, end: 20120222
  8. IRON SUCROSE [Concomitant]
     Indication: ANAEMIA
  9. ASCORBIC ACID [Concomitant]
  10. RIBOFLAVIN SODIUM PHOSPHATE [Concomitant]
     Indication: GLOSSITIS
  11. BACILLUS LICHENFORMIS [Concomitant]
     Indication: DIARRHOEA
     Dosage: UNK
     Route: 048
     Dates: start: 20120328, end: 20120329
  12. POTASSIUM CHLORIDE [Concomitant]
     Indication: MINERAL SUPPLEMENTATION
  13. LOPERAMIDE HCL [Concomitant]
     Indication: DIARRHOEA
     Dosage: UNK
     Route: 048
     Dates: start: 20120322, end: 20120610
  14. ALBUMIN (HUMAN) [Concomitant]
     Indication: SUPPLEMENTATION THERAPY
     Dosage: UNK
     Route: 042
     Dates: start: 20120410, end: 20120411
  15. DIPHENHYDRAMINE HYDROCHLORIDE [Concomitant]
     Dosage: UNK
     Route: 050
     Dates: start: 20120410, end: 20120411
  16. IRON SUCROSE [Concomitant]
     Indication: MINERAL SUPPLEMENTATION
     Dosage: UNK
     Route: 042
     Dates: start: 20120218, end: 20120410
  17. LANSOPRAZOLE [Concomitant]
     Dosage: UNK
     Route: 042
     Dates: start: 20120314, end: 20120329
  18. CIMETIDINE [Concomitant]
     Dosage: UNK
     Route: 042
     Dates: start: 20120410, end: 20120424
  19. MULTI-VITAMINS [Concomitant]
     Indication: APHTHOUS STOMATITIS
     Dosage: UNK UNK, UNK
     Route: 042
     Dates: start: 20120214, end: 20120329
  20. GLUTATHIONE [Concomitant]
     Dosage: UNK UNK, UNK
     Route: 042
     Dates: start: 20120214, end: 20120424
  21. MAGNESIUM ASPARTATE [Concomitant]
     Dosage: UNK
     Route: 042
     Dates: start: 20120228, end: 20120416
  22. BERBERINE [Concomitant]
     Indication: DIARRHOEA
     Dosage: UNK
     Route: 048
     Dates: start: 20120321, end: 20120322
  23. AMINO ACIDS [Concomitant]
     Dosage: UNK
     Route: 042
     Dates: start: 20120214, end: 20120424
  24. OMEPRAZOLE SODIUM [Concomitant]
     Dosage: UNK UNK, UNK
     Route: 042
     Dates: start: 20120214, end: 20120327
  25. POTASSIUM ASPARTATE [Concomitant]
     Indication: PROPHYLAXIS
     Dosage: UNK UNK, UNK
     Route: 042
     Dates: start: 20120228, end: 20120416
  26. VITAMIN B6 [Concomitant]
     Indication: PROPHYLAXIS
     Dosage: UNK UNK, UNK
     Route: 042
     Dates: start: 20120217, end: 20120416
  27. RIBOFLAVIN SODIUM PHOSPHATE [Concomitant]
     Indication: APHTHOUS STOMATITIS
     Dosage: UNK UNK, UNK
     Route: 042
     Dates: start: 20120314, end: 20120329
  28. PANITUMUMAB [Suspect]
     Indication: COLORECTAL CANCER
     Dosage: ADVERSE EVENT
     Dates: start: 20120215, end: 20120411
  29. GLYCYRRHIZINATE POTASSIUM [Concomitant]
     Dosage: UNK
     Route: 042
     Dates: start: 20120410, end: 20120411

REACTIONS (1)
  - HAEMOGLOBIN DECREASED [None]
